FAERS Safety Report 5777773-9 (Version None)
Quarter: 2008Q2

REPORT INFORMATION
  Report Type: 
  Country: None (occurrence: None)
  Receive Date: 20080618
  Receipt Date: 20080609
  Transmission Date: 20081010
  Serious: Yes (Other)
  Sender: FDA-Public Use
  Company Number: US-BAYER-200811711BCC

PATIENT
  Age: 63 Year
  Sex: Male

DRUGS (9)
  1. ASPIRIN [Suspect]
     Indication: BLOOD CHOLESTEROL INCREASED
     Route: 048
     Dates: end: 20070321
  2. SYNTHROID [Interacting]
     Indication: THYROID DISORDER
  3. SYMLIN [Interacting]
     Indication: TYPE 2 DIABETES MELLITUS
     Route: 058
     Dates: start: 20070317
  4. SYMLIN [Interacting]
     Route: 058
     Dates: start: 20070301, end: 20070316
  5. FISH OIL [Interacting]
     Indication: BLOOD CHOLESTEROL INCREASED
     Dates: end: 20070321
  6. PANTOPRAZOLE SODIUM [Interacting]
     Indication: GASTRIC DISORDER
  7. INSULIN LISPRO [Interacting]
     Indication: TYPE 2 DIABETES MELLITUS
     Route: 058
  8. LEVEMIR [Interacting]
     Indication: TYPE 2 DIABETES MELLITUS
     Route: 058
  9. ASPIRIN [Interacting]

REACTIONS (5)
  - BLOOD GLUCOSE ABNORMAL [None]
  - BLOOD GLUCOSE DECREASED [None]
  - BLOOD GLUCOSE INCREASED [None]
  - DIABETES MELLITUS INADEQUATE CONTROL [None]
  - GASTRIC DISORDER [None]
